FAERS Safety Report 8362165-9 (Version None)
Quarter: 2012Q2

REPORT INFORMATION
  Report Type: 
  Country: None (occurrence: None)
  Receive Date: 20120515
  Receipt Date: 20120510
  Transmission Date: 20120825
  Serious: Yes (Other)
  Sender: FDA-Public Use
  Company Number: PHHY2012CH040341

PATIENT
  Age: 49 Year
  Sex: Female

DRUGS (17)
  1. DIAZEPAM [Concomitant]
     Dates: start: 20110928, end: 20111110
  2. DEPAKENE [Suspect]
     Indication: SCHIZOPHRENIA
     Dosage: 500 MG, UNK
     Route: 048
     Dates: start: 20110928, end: 20111019
  3. HALDOL [Suspect]
     Dosage: 12.5 MG, UNK
     Route: 048
     Dates: start: 20111029, end: 20111029
  4. HALDOL [Suspect]
     Dosage: 10 MG, UNK
     Route: 048
     Dates: start: 20111030, end: 20111030
  5. HALDOL [Suspect]
     Dosage: 5 MG, UNK
     Route: 048
     Dates: start: 20111101, end: 20111101
  6. CLOZAPINE [Suspect]
     Dosage: 75 MG, UNK
     Route: 048
     Dates: end: 20111102
  7. HALDOL [Suspect]
     Dosage: 15 MG, UNK
     Route: 048
     Dates: start: 20111020, end: 20111028
  8. HALDOL [Suspect]
     Dosage: 2.5 MG, UNK
     Route: 048
     Dates: start: 20111102, end: 20111102
  9. ZYPREXA [Suspect]
     Dosage: 20 MG, UNK
     Route: 048
     Dates: start: 20111007, end: 20111101
  10. ZYPREXA [Suspect]
     Dosage: 20 MG, UNK
     Route: 048
     Dates: start: 20111104, end: 20111110
  11. CINACALCET HYDROCHLORIDE [Concomitant]
     Dosage: 60 MG, UNK
     Dates: start: 20110928, end: 20111110
  12. CLOZAPINE [Suspect]
     Indication: SCHIZOPHRENIA
     Route: 048
     Dates: start: 20111027
  13. HALDOL [Suspect]
     Dosage: 7.5 MG, UNK
     Route: 048
     Dates: start: 20111031, end: 20111031
  14. HALDOL [Suspect]
     Indication: SCHIZOPHRENIA
     Dosage: 7.5 MG, UNK
     Route: 048
     Dates: start: 20111008, end: 20111019
  15. DEPAKENE [Suspect]
     Dosage: 1000 MG, UNK
     Route: 048
     Dates: start: 20111020, end: 20111110
  16. ZYPREXA [Suspect]
     Indication: SCHIZOPHRENIA
     Dosage: 15 MG, UNK
     Route: 048
     Dates: start: 20110928, end: 20111006
  17. ZYPREXA [Suspect]
     Dosage: 10 MG, UNK
     Route: 048
     Dates: start: 20111102, end: 20111103

REACTIONS (7)
  - RENAL FAILURE [None]
  - PANCYTOPENIA [None]
  - THROMBOCYTOPENIA [None]
  - VOMITING [None]
  - SOMNOLENCE [None]
  - DRUG INEFFECTIVE [None]
  - HYPERCALCAEMIA [None]
